FAERS Safety Report 10177222 (Version 1)
Quarter: 2014Q2

REPORT INFORMATION
  Report Type: Spontaneous
  Country: US (occurrence: US)
  Receive Date: 20140516
  Receipt Date: 20140516
  Transmission Date: 20141212
  Serious: No
  Sender: FDA-Public Use
  Company Number: US-BAYER-2014-071918

PATIENT
  Sex: Female

DRUGS (1)
  1. ALEVE TABLET [Suspect]
     Dosage: UNK
     Route: 048
     Dates: start: 20140512

REACTIONS (1)
  - Headache [Unknown]
